FAERS Safety Report 26040532 (Version 1)
Quarter: 2025Q4

REPORT INFORMATION
  Report Type: Spontaneous
  Country: US (occurrence: US)
  Receive Date: 20251113
  Receipt Date: 20251113
  Transmission Date: 20260117
  Serious: No
  Sender: GILEAD
  Company Number: US-GILEAD-2025-0735721

PATIENT
  Sex: Female

DRUGS (2)
  1. LIVDELZI [Suspect]
     Active Substance: SELADELPAR LYSINE
     Indication: Primary biliary cholangitis
     Dosage: UNK
     Route: 065
  2. MOUNJARO [Concomitant]
     Active Substance: TIRZEPATIDE

REACTIONS (2)
  - Hypertransaminasaemia [Unknown]
  - Drug ineffective [Unknown]
